FAERS Safety Report 12842405 (Version 1)
Quarter: 2016Q4

REPORT INFORMATION
  Report Type: Report from Study
  Country: US (occurrence: US)
  Receive Date: 20161013
  Receipt Date: 20161013
  Transmission Date: 20170207
  Serious: Yes (Other)
  Sender: FDA-Public Use
  Company Number: US-AMGEN-USASL2016137973

PATIENT
  Age: 57 Year
  Sex: Female

DRUGS (2)
  1. PREDNISONE. [Suspect]
     Active Substance: PREDNISONE
     Indication: ADRENAL INSUFFICIENCY
     Dosage: UNK
     Route: 065
  2. ENBREL [Suspect]
     Active Substance: ETANERCEPT
     Indication: PSORIATIC ARTHROPATHY
     Dosage: 50 MG, QWK
     Route: 065

REACTIONS (9)
  - Uterine disorder [Not Recovered/Not Resolved]
  - Adrenal insufficiency [Recovered/Resolved]
  - Urinary tract infection [Recovered/Resolved]
  - Pharyngitis [Recovered/Resolved]
  - Unevaluable event [Recovered/Resolved]
  - Vitamin D decreased [Recovered/Resolved]
  - Uterine dilation and curettage [Not Recovered/Not Resolved]
  - Osteoporosis [Recovered/Resolved]
  - Infection [Recovered/Resolved]
